FAERS Safety Report 5018624-X (Version None)
Quarter: 2006Q2

REPORT INFORMATION
  Report Type: 
  Country: None (occurrence: None)
  Receive Date: 20060414
  Receipt Date: 20060103
  Transmission Date: 20061013
  Serious: No
  Sender: FDA-Public Use
  Company Number: 2006SP000023

PATIENT
  Age: 47 Year
  Sex: Male

DRUGS (6)
  1. LUNESTA [Suspect]
     Indication: INSOMNIA
     Dosage: 2 MG;PRN;ORAL
     Route: 048
     Dates: start: 20051201
  2. XANAX [Concomitant]
  3. VALERIANA OFFICINALIS [Concomitant]
  4. HERBAL PREPARATION [Concomitant]
  5. AMBIEN [Concomitant]
  6. MARIJUANA [Concomitant]

REACTIONS (2)
  - DYSGEUSIA [None]
  - INSOMNIA [None]
